FAERS Safety Report 7618571-0 (Version None)
Quarter: 2011Q3

REPORT INFORMATION
  Report Type: 
  Country: None (occurrence: None)
  Receive Date: 20110718
  Receipt Date: 20110712
  Transmission Date: 20111222
  Serious: Yes (Congenital Anomaly, Other)
  Sender: FDA-Public Use
  Company Number: US-PFIZER INC-2011158406

PATIENT
  Sex: Female
  Weight: 2.75 kg

DRUGS (4)
  1. EFFEXOR XR [Suspect]
     Indication: BIPOLAR DISORDER
     Dosage: 150 MG, 1X/DAY
     Route: 064
  2. FOLIC ACID [Concomitant]
     Route: 064
  3. SEROQUEL [Concomitant]
     Indication: BIPOLAR DISORDER
     Dosage: 25 MG, 1X/DAY, EVERY BEDTIME
     Route: 064
  4. KLONOPIN [Concomitant]
     Indication: BIPOLAR DISORDER
     Dosage: 0.25 MG, 1X/DAY, EVERY BEDTIME
     Route: 064

REACTIONS (7)
  - PATENT DUCTUS ARTERIOSUS [None]
  - PULMONARY VALVE INCOMPETENCE [None]
  - CARDIAC MURMUR [None]
  - MATERNAL EXPOSURE DURING PREGNANCY [None]
  - TRICUSPID VALVE INCOMPETENCE [None]
  - ATRIAL SEPTAL DEFECT [None]
  - CARDIOMEGALY [None]
